FAERS Safety Report 7312009-9 (Version None)
Quarter: 2011Q1

REPORT INFORMATION
  Report Type: 
  Country: None (occurrence: None)
  Receive Date: 20110224
  Receipt Date: 20110129
  Transmission Date: 20110831
  Serious: No
  Sender: FDA-Public Use
  Company Number: US-B.I. PHARMACEUTICALS,INC./RIDGEFIELD-2011-BP-03085BP

PATIENT
  Sex: Female

DRUGS (4)
  1. AMIODARONE HCL [Concomitant]
     Indication: ARRHYTHMIA
     Dates: start: 20110125
  2. ASPIRIN [Concomitant]
     Indication: ATRIAL FIBRILLATION
     Dates: start: 20110125
  3. PRADAXA [Suspect]
     Indication: ATRIAL FIBRILLATION
     Dosage: 300 MG
     Route: 048
     Dates: start: 20110125
  4. BONIVA [Concomitant]
     Indication: OSTEOPOROSIS

REACTIONS (3)
  - ERUCTATION [None]
  - ABDOMINAL DISTENSION [None]
  - CONSTIPATION [None]
